FAERS Safety Report 7623867-2 (Version None)
Quarter: 2011Q3

REPORT INFORMATION
  Report Type: 
  Country: None (occurrence: None)
  Receive Date: 20110712
  Receipt Date: 20110627
  Transmission Date: 20111222
  Serious: Yes (Hospitalization)
  Sender: FDA-Public Use
  Company Number: 1000021996

PATIENT
  Age: 31 Year
  Sex: Female
  Weight: 85 kg

DRUGS (7)
  1. ESCITALOPRAM OXALATE [Suspect]
     Dosage: 10 MG (10 MG, 1 IN 1 D),ORAL; 20 MG (20 MG, 1 IN 1 D), ORAL
     Route: 048
     Dates: start: 20110519
  2. ESCITALOPRAM OXALATE [Suspect]
     Dosage: 10 MG (10 MG, 1 IN 1 D),ORAL; 20 MG (20 MG, 1 IN 1 D), ORAL
     Route: 048
     Dates: start: 20110404, end: 20110518
  3. ATOSIL (PROMETHAZINE HYDROCHLORIDE) (PROMETHAZINE HYDROCHLORIDE) [Concomitant]
  4. MIRTAZAPINE [Suspect]
     Dosage: 15 MG (15 MG, 1 IN 1 D),ORAL; 30 MG (30 MG, 1 IN 1 D), ORAL; 45 MG (45 MG, 1 IN 1 D), ORAL
     Route: 048
     Dates: start: 20110413, end: 20110524
  5. MIRTAZAPINE [Suspect]
     Dosage: 15 MG (15 MG, 1 IN 1 D),ORAL; 30 MG (30 MG, 1 IN 1 D), ORAL; 45 MG (45 MG, 1 IN 1 D), ORAL
     Route: 048
     Dates: start: 20110405, end: 20110407
  6. MIRTAZAPINE [Suspect]
     Dosage: 15 MG (15 MG, 1 IN 1 D),ORAL; 30 MG (30 MG, 1 IN 1 D), ORAL; 45 MG (45 MG, 1 IN 1 D), ORAL
     Route: 048
     Dates: start: 20110408, end: 20110412
  7. MARCUMAR (PHENPROCOUMON) (PHENPROCOUMON) [Concomitant]

REACTIONS (4)
  - DRUG INTERACTION [None]
  - DEPRESSION [None]
  - ALANINE AMINOTRANSFERASE INCREASED [None]
  - OEDEMA PERIPHERAL [None]
